FAERS Safety Report 4850769-7 (Version None)
Quarter: 2005Q4

REPORT INFORMATION
  Report Type: 
  Country: None (occurrence: None)
  Receive Date: 20051212
  Receipt Date: 20051129
  Transmission Date: 20060501
  Serious: Yes (Hospitalization)
  Sender: FDA-Public Use
  Company Number: FR-AVENTIS-200514768EU

PATIENT
  Age: 62 Year
  Sex: Female

DRUGS (12)
  1. DELURSAN [Suspect]
     Indication: BILIARY CIRRHOSIS PRIMARY
     Route: 048
  2. LASILIX [Suspect]
  3. CAPTOPRIL [Suspect]
     Route: 048
  4. LOPRESSOR [Suspect]
     Route: 048
  5. PREVISCAN [Suspect]
     Dosage: DOSE: UNKNOWN DOSE
     Dates: start: 20050801, end: 20050824
  6. SINTROM [Suspect]
     Route: 048
     Dates: start: 20050818, end: 20050824
  7. NPH INSULIN [Concomitant]
     Dosage: DOSE: 20 UNITS ON THE MORNING AND 14 UNITS IN THE EVENING.
     Route: 042
  8. LANTUS [Concomitant]
     Dosage: DOSE: UNKNOWN DOSE
  9. ACTRAPID [Concomitant]
     Dosage: DOSE: 4 UNITS ON THE MORNING AND 4UNITS ON THE EVENING.
  10. DIFRAREL [Concomitant]
  11. CACIT D3 [Concomitant]
  12. DUPHALAC [Concomitant]
     Dosage: DOSE: 2 OR 4 SACHETS

REACTIONS (2)
  - CUTANEOUS VASCULITIS [None]
  - HEPATIC ENCEPHALOPATHY [None]
